FAERS Safety Report 8861978 (Version 1)
Quarter: 2012Q4

REPORT INFORMATION
  Report Type: 
  Country: LB (occurrence: LB)
  Receive Date: 20121025
  Receipt Date: 20121025
  Transmission Date: 20130627
  Serious: Yes (Death)
  Sender: FDA-Public Use
  Company Number: LB-SANOFI-AVENTIS-2012SA077978

PATIENT
  Age: 64 Year
  Sex: Male

DRUGS (7)
  1. LANTUS [Suspect]
     Indication: DIABETES
     Dosage: Dose:20 unit(s)
     Route: 058
     Dates: start: 20120814
  2. LANTUS [Suspect]
     Indication: DIABETES
     Dosage: Dose:22 unit(s)
     Route: 058
     Dates: end: 20120909
  3. APIDRA [Suspect]
     Indication: DIABETES
     Dosage: Dose:10 unit(s)
     Route: 058
     Dates: start: 20120814
  4. APIDRA [Suspect]
     Indication: DIABETES
     Dosage: Dose:4 unit(s)
     Route: 058
     Dates: end: 20120909
  5. CONCOR [Concomitant]
     Indication: HYPERTENSION
     Route: 048
  6. TRIMETAZIDINE HYDROCHLORIDE [Concomitant]
     Indication: CORONARY ARTERY DISEASE
     Route: 048
  7. HYDROCHLOROTHIAZIDE\LISINOPRIL [Concomitant]
     Indication: HYPERTENSION
     Route: 048

REACTIONS (1)
  - Myocardial infarction [Fatal]
